FAERS Safety Report 9426799 (Version 1)
Quarter: 2013Q3

REPORT INFORMATION
  Report Type: Spontaneous
  Country: US (occurrence: US)
  Receive Date: 20130730
  Receipt Date: 20130730
  Transmission Date: 20140515
  Serious: No
  Sender: FDA-Public Use
  Company Number: US-SANOFI-AVENTIS-2012SA083605

PATIENT
  Age: 70 Year
  Sex: Male

DRUGS (1)
  1. AMBIEN CR [Suspect]
     Indication: SLEEP DISORDER
     Route: 048

REACTIONS (3)
  - Bladder disorder [Unknown]
  - Pain [Unknown]
  - Drug ineffective [Unknown]
